FAERS Safety Report 16114841 (Version 2)
Quarter: 2019Q2

REPORT INFORMATION
  Report Type: Spontaneous
  Country: US (occurrence: US)
  Receive Date: 20190325
  Receipt Date: 20190416
  Transmission Date: 20190711
  Serious: Yes (Other)
  Sender: FDA-Public Use
  Company Number: US-SA-2019SA001732

PATIENT
  Age: 36 Year
  Sex: Female

DRUGS (1)
  1. ICY HOT (MENTHOL) [Suspect]
     Active Substance: MENTHOL
     Indication: BACK PAIN
     Dosage: UNK
     Dates: start: 20181229

REACTIONS (7)
  - Scar [Unknown]
  - Burning sensation [Unknown]
  - Burns second degree [Unknown]
  - Haemorrhage [Unknown]
  - Spinal pain [Unknown]
  - Pruritus [Unknown]
  - Skin exfoliation [Unknown]

NARRATIVE: CASE EVENT DATE: 20181229
